FAERS Safety Report 10309955 (Version 1)
Quarter: 2014Q3

REPORT INFORMATION
  Report Type: Spontaneous
  Country: US (occurrence: None)
  Receive Date: 20140715
  Receipt Date: 20140715
  Transmission Date: 20150326
  Serious: Yes (Other)
  Sender: FDA-Public Use
  Company Number: None

PATIENT
  Age: 42 Year
  Sex: Female
  Weight: 68.04 kg

DRUGS (1)
  1. INVEGA [Suspect]
     Active Substance: PALIPERIDONE
     Indication: BIPOLAR DISORDER
     Dosage: 117 MG MONTHLY INTO THE MUSCLE
     Route: 030
     Dates: start: 20140711

REACTIONS (4)
  - Injection site rash [None]
  - Injection site pain [None]
  - Drug hypersensitivity [None]
  - Injection site swelling [None]

NARRATIVE: CASE EVENT DATE: 20140713
